FAERS Safety Report 7832961-2 (Version None)
Quarter: 2011Q4

REPORT INFORMATION
  Report Type: 
  Country: None (occurrence: None)
  Receive Date: 20111019
  Receipt Date: 20111007
  Transmission Date: 20120403
  Serious: Yes (Other)
  Sender: FDA-Public Use
  Company Number: AUR-APL-2011-05388

PATIENT
  Age: 47 Year
  Sex: Female

DRUGS (1)
  1. FLUOXETINE [Suspect]
     Indication: ANXIETY
     Dosage: (1 DOSAGE FORMS,1 D)
     Dates: start: 20110919, end: 20110921

REACTIONS (8)
  - BREAST PAIN [None]
  - MALAISE [None]
  - DRUG EFFECT DELAYED [None]
  - INSOMNIA [None]
  - FEELING ABNORMAL [None]
  - REACTION TO DRUG EXCIPIENTS [None]
  - RENAL PAIN [None]
  - DRUG INEFFECTIVE [None]
